FAERS Safety Report 8531736-9 (Version None)
Quarter: 2012Q3

REPORT INFORMATION
  Report Type: 
  Country: None (occurrence: None)
  Receive Date: 20120723
  Receipt Date: 20120628
  Transmission Date: 20120928
  Serious: No
  Sender: FDA-Public Use
  Company Number: BR-009507513-1205BRA00053

PATIENT

DRUGS (3)
  1. EMEND [Suspect]
     Indication: VOMITING
     Dosage: UNK MG, UNK
     Route: 048
     Dates: start: 20120423, end: 20120628
  2. EMEND [Suspect]
     Indication: NAUSEA
     Dosage: UNK MG, UNK
     Route: 048
     Dates: start: 20120506
  3. ANTINEOPLASTIC (UNSPECIFIED) [Concomitant]

REACTIONS (3)
  - VOMITING [None]
  - DRUG INEFFECTIVE [None]
  - ADENOCARCINOMA [None]
